FAERS Safety Report 7568281-3 (Version None)
Quarter: 2011Q2

REPORT INFORMATION
  Report Type: 
  Country: None (occurrence: None)
  Receive Date: 20110623
  Receipt Date: 20110609
  Transmission Date: 20111010
  Serious: Yes (Other)
  Sender: FDA-Public Use
  Company Number: CA-JNJFOC-20110505395

PATIENT
  Sex: Female
  Weight: 67.5 kg

DRUGS (5)
  1. REMICADE [Suspect]
     Indication: COLITIS ULCERATIVE
     Route: 042
     Dates: start: 20100601, end: 20110408
  2. CORGARD [Concomitant]
     Route: 048
  3. LIPIDIL [Concomitant]
  4. ASACOL [Concomitant]
  5. DIOVAN [Concomitant]
     Route: 048

REACTIONS (4)
  - HYPERTENSION [None]
  - INFUSION RELATED REACTION [None]
  - DYSPNOEA [None]
  - HEART RATE INCREASED [None]
